FAERS Safety Report 23986270 (Version 7)
Quarter: 2024Q3

REPORT INFORMATION
  Report Type: Spontaneous
  Country: JP (occurrence: JP)
  Receive Date: 20240618
  Receipt Date: 20240916
  Transmission Date: 20241017
  Serious: Yes (Death, Other)
  Sender: OTSUKA
  Company Number: JP-OTSUKA-2024_017213

PATIENT
  Age: 59 Year
  Sex: Male
  Weight: 49.7 kg

DRUGS (7)
  1. REXULTI [Suspect]
     Active Substance: BREXPIPRAZOLE
     Indication: Allergy test
     Dosage: 1 MG/TIME, PER DAY
     Route: 048
     Dates: start: 20240522, end: 20240528
  2. ARIPIPRAZOLE [Concomitant]
     Active Substance: ARIPIPRAZOLE
     Indication: Schizophrenia
     Dosage: 12 MG/TIME, PER DAY
     Route: 048
     Dates: start: 20240522, end: 20240528
  3. ARIPIPRAZOLE [Concomitant]
     Active Substance: ARIPIPRAZOLE
     Dosage: 6 MG/TIME, PER DAY
     Route: 048
     Dates: start: 20240529, end: 20240603
  4. ESZOPICLONE [Concomitant]
     Active Substance: ESZOPICLONE
     Indication: Insomnia
     Dosage: 3 MG/TIME, PER DAY
     Route: 048
     Dates: start: 20240528, end: 20240608
  5. DAYVIGO [Concomitant]
     Active Substance: LEMBOREXANT
     Indication: Insomnia
     Dosage: 10 MG/TIME, PER DAY
     Route: 048
     Dates: start: 20240604, end: 20240608
  6. NITRAZEPAM [Concomitant]
     Active Substance: NITRAZEPAM
     Indication: Insomnia
     Dosage: 10 MG/TIME, PER DAY
     Route: 048
     Dates: end: 20240526
  7. RILMAZAFONE HYDROCHLORIDE [Concomitant]
     Active Substance: RILMAZAFONE HYDROCHLORIDE
     Indication: Insomnia
     Dosage: 2 MG/TIME, PER DAY
     Route: 048
     Dates: end: 20240526

REACTIONS (1)
  - Death [Fatal]

NARRATIVE: CASE EVENT DATE: 20240609
